FAERS Safety Report 7973202-5 (Version None)
Quarter: 2011Q4

REPORT INFORMATION
  Report Type: 
  Country: None (occurrence: None)
  Receive Date: 20111213
  Receipt Date: 20111130
  Transmission Date: 20120403
  Serious: Yes (Hospitalization, Other)
  Sender: FDA-Public Use
  Company Number: PHHY2011CA106286

PATIENT
  Sex: Male

DRUGS (1)
  1. SANDOSTATIN LAR [Suspect]
     Indication: METASTASES TO PANCREAS
     Dosage: 30 MG, QMO
     Route: 030
     Dates: start: 20111129

REACTIONS (5)
  - FAECES DISCOLOURED [None]
  - FOOD POISONING [None]
  - DIARRHOEA [None]
  - FATIGUE [None]
  - ABDOMINAL PAIN [None]
